FAERS Safety Report 10170133 (Version 3)
Quarter: 2014Q3

REPORT INFORMATION
  Report Type: Report from Study
  Country: IT (occurrence: IT)
  Receive Date: 20140513
  Receipt Date: 20140702
  Transmission Date: 20150326
  Serious: Yes (Hospitalization)
  Sender: FDA-Public Use
  Company Number: IT-VIIV HEALTHCARE LIMITED-B0992514A

PATIENT
  Age: 81 Year
  Sex: Male
  Weight: 65 kg

DRUGS (4)
  1. DOLUTEGRAVIR [Suspect]
     Active Substance: DOLUTEGRAVIR
     Indication: HIV INFECTION
     Dosage: 100MG PER DAY
     Route: 048
     Dates: start: 20130502, end: 20140430
  2. SAQUINAVIR [Concomitant]
     Active Substance: SAQUINAVIR
     Indication: HIV INFECTION
     Dosage: 1000MG PER DAY
     Route: 048
     Dates: start: 20130502
  3. RITONAVIR [Concomitant]
     Active Substance: RITONAVIR
     Indication: HIV INFECTION
     Dosage: 200MG PER DAY
     Route: 048
     Dates: start: 20100428
  4. DARUNAVIR [Concomitant]
     Active Substance: DARUNAVIR
     Indication: HIV INFECTION
     Dosage: 1200MG PER DAY
     Route: 048
     Dates: start: 20100428

REACTIONS (25)
  - Prostate cancer metastatic [Unknown]
  - Dysuria [Unknown]
  - Anaemia [Unknown]
  - Hydronephrosis [Unknown]
  - Chronic respiratory failure [Unknown]
  - Infection [Unknown]
  - Metastases to bone [Unknown]
  - Ill-defined disorder [Unknown]
  - Bone pain [Unknown]
  - Haematuria [Unknown]
  - Liver disorder [Unknown]
  - Pyrexia [Unknown]
  - Renal failure acute [Unknown]
  - Urethral operation [Unknown]
  - Hypertension [Unknown]
  - Prostatic specific antigen abnormal [Unknown]
  - Enterococcus test positive [Unknown]
  - General physical health deterioration [Unknown]
  - Pain [Unknown]
  - Biopsy prostate [Unknown]
  - Renal failure [Unknown]
  - Calculus urethral [Unknown]
  - Lung consolidation [Unknown]
  - Asthenia [Unknown]
  - Prostate cancer metastatic [Not Recovered/Not Resolved]

NARRATIVE: CASE EVENT DATE: 201306
